FAERS Safety Report 16528015 (Version 1)
Quarter: 2019Q3

REPORT INFORMATION
  Report Type: Report from Study
  Country: US (occurrence: US)
  Receive Date: 20190704
  Receipt Date: 20190704
  Transmission Date: 20191004
  Serious: Yes (Hospitalization, Other)
  Sender: FDA-Public Use
  Company Number: US-JNJFOC-20190631363

PATIENT
  Sex: Male

DRUGS (2)
  1. KYPROLIS [Concomitant]
     Active Substance: CARFILZOMIB
  2. DARZALEX [Suspect]
     Active Substance: DARATUMUMAB
     Indication: PRODUCT USED FOR UNKNOWN INDICATION
     Route: 042

REACTIONS (7)
  - Back pain [Unknown]
  - Wheezing [Recovered/Resolved]
  - Chest pain [Unknown]
  - Rash [Unknown]
  - Hospitalisation [Unknown]
  - Infusion related reaction [Unknown]
  - Chills [Recovered/Resolved]
